FAERS Safety Report 12493269 (Version 1)
Quarter: 2016Q2

REPORT INFORMATION
  Report Type: Spontaneous
  Country: US (occurrence: US)
  Receive Date: 20160623
  Receipt Date: 20160623
  Transmission Date: 20160815
  Serious: No
  Sender: FDA-Public Use
  Company Number: US-BAYER-2016-122717

PATIENT
  Age: 59 Year
  Sex: Male
  Weight: 90.7 kg

DRUGS (2)
  1. ALEVE [Suspect]
     Active Substance: NAPROXEN SODIUM
     Indication: ANALGESIC THERAPY
     Dosage: 1-2 DF, QD
     Route: 048
     Dates: start: 2012
  2. CORTISONE [Concomitant]
     Active Substance: CORTISONE\HYDROCORTISONE

REACTIONS (1)
  - Product use issue [None]
